FAERS Safety Report 8795472 (Version 1)
Quarter: 2012Q4

REPORT INFORMATION
  Report Type: 
  Country: BR (occurrence: BR)
  Receive Date: 20120917
  Receipt Date: 20120917
  Transmission Date: 20130627
  Serious: Yes (Hospitalization, Other)
  Sender: FDA-Public Use
  Company Number: BR-PFIZER INC-2012225625

PATIENT
  Age: 54 Year
  Sex: Male

DRUGS (1)
  1. FRONTAL XR [Suspect]
     Indication: DEPRESSION
     Dosage: 0.5 mg, 1x/day (one tablet once a day)
     Route: 048
     Dates: start: 201103

REACTIONS (2)
  - Liver transplant [Unknown]
  - Off label use [Unknown]
